FAERS Safety Report 8223036-1 (Version None)
Quarter: 2012Q1

REPORT INFORMATION
  Report Type: 
  Country: None (occurrence: None)
  Receive Date: 20120321
  Receipt Date: 20120309
  Transmission Date: 20120608
  Serious: Yes (Hospitalization, Other)
  Sender: FDA-Public Use
  Company Number: JP-BRISTOL-MYERS SQUIBB COMPANY-16388134

PATIENT
  Age: 64 Year
  Sex: Female

DRUGS (16)
  1. SENIRAN [Concomitant]
     Indication: DEPRESSION
     Route: 048
  2. CEFDINIR [Concomitant]
     Route: 048
  3. SCOPOLAMINE [Concomitant]
     Route: 048
  4. HUMALOG [Concomitant]
     Indication: DIABETES MELLITUS
     Route: 058
  5. ATENOLOL [Concomitant]
  6. BETAMAC [Concomitant]
     Route: 048
  7. METFORMIN HCL [Suspect]
     Indication: DIABETES MELLITUS
     Dosage: 24FB11-1FEB12(222D) 9FB12-STOPD
     Route: 048
     Dates: start: 20110624, end: 20120101
  8. LANTUS [Concomitant]
     Indication: DIABETES MELLITUS
     Route: 058
  9. LANSOPRAZOLE [Concomitant]
     Indication: GASTRIC ULCER
     Route: 048
  10. BROTIZOLAM [Concomitant]
     Indication: DEPRESSION
     Route: 048
  11. CALBLOCK [Concomitant]
     Indication: HYPERTENSION
     Route: 048
  12. VALTREX [Concomitant]
     Indication: HERPES ZOSTER
     Route: 048
     Dates: start: 20120125, end: 20120130
  13. HYZAAR [Concomitant]
     Indication: HYPERTENSION
     Route: 048
  14. TENORMIN [Concomitant]
     Indication: HYPERTENSION
     Route: 048
  15. AMITRIPTYLINE HCL [Concomitant]
     Indication: DEPRESSION
     Route: 048
  16. LOXONIN [Concomitant]
     Route: 048

REACTIONS (5)
  - RENAL FAILURE ACUTE [None]
  - LACTIC ACIDOSIS [None]
  - POSTRENAL FAILURE [None]
  - HERPES ZOSTER [None]
  - DRUG LEVEL INCREASED [None]
